FAERS Safety Report 13528364 (Version 3)
Quarter: 2017Q2

REPORT INFORMATION
  Report Type: Spontaneous
  Country: JP (occurrence: JP)
  Receive Date: 20170509
  Receipt Date: 20170623
  Transmission Date: 20170830
  Serious: Yes (Hospitalization, Other)
  Sender: FDA-Public Use
  Company Number: JP-GILEAD-2017-0268107

PATIENT
  Age: 57 Year
  Sex: Female
  Weight: 73.3 kg

DRUGS (8)
  1. BENZALIN                           /00036201/ [Concomitant]
     Active Substance: NITRAZEPAM
     Indication: INSOMNIA
     Dosage: 2 DF, UNK
  2. CALONAL [Concomitant]
     Active Substance: ACETAMINOPHEN
     Indication: BACK PAIN
     Dosage: 1 DF, UNK
  3. PROMAC D [Concomitant]
     Active Substance: POLAPREZINC
     Indication: ZINC DEFICIENCY
     Dosage: 2 DF, UNK
  4. HARVONI [Interacting]
     Active Substance: LEDIPASVIR\SOFOSBUVIR
     Dosage: 1 DF, UNK
     Route: 048
     Dates: start: 20170416, end: 20170516
  5. TAURINE [Concomitant]
     Active Substance: TAURINE
     Dosage: 3 DF, UNK
  6. URSO [Concomitant]
     Active Substance: URSODIOL
     Indication: HEPATITIS C
     Dosage: 6 DF, UNK
  7. HARVONI [Suspect]
     Active Substance: LEDIPASVIR\SOFOSBUVIR
     Indication: HEPATITIS C
     Dosage: 1 DF, UNK
     Route: 048
     Dates: start: 20170217, end: 20170412
  8. RABEPRAZOL [Interacting]
     Active Substance: RABEPRAZOLE
     Indication: PRODUCT USED FOR UNKNOWN INDICATION
     Route: 065

REACTIONS (4)
  - Gastric ulcer haemorrhage [Recovering/Resolving]
  - Drug interaction [Recovering/Resolving]
  - Inappropriate schedule of drug administration [Recovered/Resolved]
  - Intercepted drug prescribing error [Recovered/Resolved]

NARRATIVE: CASE EVENT DATE: 20170403
